FAERS Safety Report 8988779 (Version 1)
Quarter: 2012Q4

REPORT INFORMATION
  Report Type: Spontaneous
  Country: US (occurrence: None)
  Receive Date: 20121218
  Receipt Date: 20121218
  Transmission Date: 20130627
  Serious: Yes (Life-Threatening)
  Sender: FDA-Public Use
  Company Number: 001434964A

PATIENT
  Age: 31 Year
  Sex: Female

DRUGS (5)
  1. PROACTIV RENEWING CLEANSER [Suspect]
     Dosage: twice daily dermal
     Dates: start: 20121027, end: 20121102
  2. PROACTIV REPAIRING TREATMENT [Suspect]
     Dosage: twice daily dermal
     Dates: start: 20121027, end: 20121102
  3. PROACTIV DEEP CLEANSING WASH [Suspect]
     Dosage: Twice daily dermal
     Dates: start: 20121027, end: 20121102
  4. PROACTIV DARK SPOT CORRECTOR [Suspect]
     Dosage: Twice daily dermal
     Dates: start: 20121027, end: 20121102
  5. DAILY VITAMIN [Concomitant]

REACTIONS (4)
  - Feeling hot [None]
  - Obstructive airways disorder [None]
  - Dyspnoea [None]
  - Rash [None]
